FAERS Safety Report 16566897 (Version 2)
Quarter: 2019Q3

REPORT INFORMATION
  Report Type: Spontaneous
  Country: JP (occurrence: JP)
  Receive Date: 20190712
  Receipt Date: 20190928
  Transmission Date: 20191004
  Serious: Yes (Hospitalization)
  Sender: FDA-Public Use
  Company Number: JP-ABBVIE-18S-087-2442944-00

PATIENT
  Age: 51 Year
  Sex: Female

DRUGS (1)
  1. DUODOPA [Suspect]
     Active Substance: CARBIDOPA\LEVODOPA
     Indication: PARKINSON^S DISEASE
     Dosage: MD: 6.3 ML
     Route: 050

REACTIONS (7)
  - Bezoar [Recovered/Resolved]
  - Stoma site extravasation [Unknown]
  - Device dislocation [Recovered/Resolved]
  - Arthritis [Unknown]
  - Device dislocation [Unknown]
  - Drug ineffective [Unknown]
  - Mobility decreased [Unknown]

NARRATIVE: CASE EVENT DATE: 20190704
